FAERS Safety Report 13737629 (Version 1)
Quarter: 2017Q3

REPORT INFORMATION
  Report Type: Spontaneous
  Country: US (occurrence: US)
  Receive Date: 20170710
  Receipt Date: 20170710
  Transmission Date: 20171127
  Serious: Yes (Other)
  Sender: FDA-Public Use
  Company Number: US-SAOL THERAPEUTICS-2016SAO00432

PATIENT
  Age: 48 Year
  Sex: Male

DRUGS (5)
  1. BACLOFEN. [Suspect]
     Active Substance: BACLOFEN
     Indication: SPINAL PAIN
     Dosage: 24.03 ?G, \DAY
     Route: 037
  2. HYDROMORPHONE [Suspect]
     Active Substance: HYDROMORPHONE
     Dosage: 3.125 MG, \DAY
  3. CLONIDINE. [Suspect]
     Active Substance: CLONIDINE
     Dosage: 4.81 ?G, \DAY
  4. FENTANYL. [Suspect]
     Active Substance: FENTANYL
     Dosage: 96.1 ?G, \DAY
     Route: 037
  5. MORPHINE [Suspect]
     Active Substance: MORPHINE
     Dosage: 0.1202 MG, \DAY
     Route: 037

REACTIONS (6)
  - Device occlusion [Recovered/Resolved]
  - Off label use [Unknown]
  - Infusion site mass [Recovered/Resolved]
  - Drug withdrawal syndrome [Unknown]
  - Device malfunction [Recovered/Resolved]
  - Pain [Not Recovered/Not Resolved]

NARRATIVE: CASE EVENT DATE: 201605
